FAERS Safety Report 14461386 (Version 3)
Quarter: 2018Q1

REPORT INFORMATION
  Report Type: Spontaneous
  Country: GB (occurrence: GB)
  Receive Date: 20180130
  Receipt Date: 20180321
  Transmission Date: 20180509
  Serious: Yes (Other)
  Sender: FDA-Public Use
  Company Number: GB-PFIZER INC-2018035975

PATIENT
  Age: 33 Year
  Sex: Female

DRUGS (6)
  1. VENLAFAXINE HCL [Suspect]
     Active Substance: VENLAFAXINE HYDROCHLORIDE
     Indication: MIGRAINE
     Dosage: MAXIMUM DOSE OF 150MG
  2. VENLAFAXINE HCL [Suspect]
     Active Substance: VENLAFAXINE HYDROCHLORIDE
     Indication: DEPRESSED MOOD
  3. VENLAFAXINE HCL [Suspect]
     Active Substance: VENLAFAXINE HYDROCHLORIDE
     Indication: AFFECTIVE DISORDER
  4. MIRTAZAPINE. [Suspect]
     Active Substance: MIRTAZAPINE
     Indication: MIGRAINE
     Dosage: UNK
     Dates: start: 2015
  5. MIRTAZAPINE. [Suspect]
     Active Substance: MIRTAZAPINE
     Indication: DEPRESSED MOOD
  6. MIRTAZAPINE. [Suspect]
     Active Substance: MIRTAZAPINE
     Indication: AFFECTIVE DISORDER

REACTIONS (40)
  - Withdrawal syndrome [Unknown]
  - Somnolence [Unknown]
  - Agitation [Unknown]
  - Drug ineffective [Unknown]
  - Seizure [Unknown]
  - Sensory disturbance [Unknown]
  - Loss of personal independence in daily activities [Unknown]
  - Cerebral disorder [Unknown]
  - Fear [Unknown]
  - Asthenopia [Unknown]
  - Speech disorder [Unknown]
  - Thyroid cancer [Unknown]
  - Dissociation [Unknown]
  - Head discomfort [Unknown]
  - Tachycardia [Unknown]
  - Hypersomnia [Unknown]
  - Sleep terror [Unknown]
  - Ocular discomfort [Unknown]
  - Depressed mood [Unknown]
  - Panic disorder [Unknown]
  - Condition aggravated [Unknown]
  - Hyperacusis [Unknown]
  - Dyspnoea [Unknown]
  - Exaggerated startle response [Unknown]
  - Malaise [Unknown]
  - Anger [Unknown]
  - Sensory overload [Unknown]
  - Dyskinesia [Unknown]
  - Confusional state [Unknown]
  - Photophobia [Unknown]
  - Catatonia [Unknown]
  - Mental impairment [Unknown]
  - Fatigue [Unknown]
  - Night sweats [Unknown]
  - Tremor [Unknown]
  - Dizziness [Unknown]
  - Migraine [Unknown]
  - Central nervous system lesion [Unknown]
  - Hallucination [Unknown]
  - Movement disorder [Unknown]
